FAERS Safety Report 13064770 (Version 3)
Quarter: 2017Q2

REPORT INFORMATION
  Report Type: Spontaneous
  Country: US (occurrence: US)
  Receive Date: 20161227
  Receipt Date: 20170418
  Transmission Date: 20170830
  Serious: Yes (Other)
  Sender: FDA-Public Use
  Company Number: US-WEST-WARD PHARMACEUTICALS CORP.-US-H14001-16-02986

PATIENT
  Age: 5 Year
  Sex: Female
  Weight: 56.3 kg

DRUGS (4)
  1. FLUTICASONE PROPIONATE. [Suspect]
     Active Substance: FLUTICASONE PROPIONATE
     Indication: HYPERSENSITIVITY
     Route: 045
     Dates: start: 2011, end: 201507
  2. TRETINION CREAM [Concomitant]
     Indication: ACNE
     Route: 061
     Dates: start: 201607
  3. VITAMINS [Concomitant]
     Active Substance: VITAMINS
     Indication: ANAEMIA
     Route: 065
  4. MIRALAX [Concomitant]
     Active Substance: POLYETHYLENE GLYCOL 3350
     Indication: CONSTIPATION
     Route: 065

REACTIONS (11)
  - Headache [Unknown]
  - Abdominal pain upper [Not Recovered/Not Resolved]
  - Chest pain [Unknown]
  - Faecaloma [Not Recovered/Not Resolved]
  - Blood arsenic increased [Unknown]
  - Drug diversion [Recovered/Resolved]
  - Urine arsenic increased [Unknown]
  - Counterfeit drug administered [Recovered/Resolved]
  - Pain in extremity [Unknown]
  - Rash [Unknown]
  - Diplopia [Recovered/Resolved]

NARRATIVE: CASE EVENT DATE: 201109
